FAERS Safety Report 25722821 (Version 1)
Quarter: 2025Q3

REPORT INFORMATION
  Report Type: Spontaneous
  Country: KR (occurrence: KR)
  Receive Date: 20250825
  Receipt Date: 20250825
  Transmission Date: 20251021
  Serious: Yes (Hospitalization, Other)
  Sender: MYLAN
  Company Number: KR-MYLANLABS-2025M1071792

PATIENT

DRUGS (3)
  1. CLOZARIL [Suspect]
     Active Substance: CLOZAPINE
     Indication: Sleep disorder
  2. CLOZARIL [Suspect]
     Active Substance: CLOZAPINE
  3. Amisul [Concomitant]

REACTIONS (9)
  - Hospitalisation [Recovered/Resolved]
  - Hallucination [Not Recovered/Not Resolved]
  - Pain [Not Recovered/Not Resolved]
  - Dyspnoea [Unknown]
  - Anxiety [Unknown]
  - Sensory disturbance [Unknown]
  - Dizziness [Unknown]
  - Product prescribing issue [Unknown]
  - Off label use [Unknown]
